FAERS Safety Report 21648763 (Version 1)
Quarter: 2022Q4

REPORT INFORMATION
  Report Type: Other
  Country: CN (occurrence: None)
  Receive Date: 20221128
  Receipt Date: 20221128
  Transmission Date: 20230113
  Serious: Yes (Other)
  Sender: FDA-Public Use
  Company Number: CN-ROCHE-3224721

PATIENT
  Age: 49 Year
  Sex: Male

DRUGS (8)
  1. BEVACIZUMAB [Suspect]
     Active Substance: BEVACIZUMAB
     Indication: Adenocarcinoma of colon
     Dosage: DAY 1
     Route: 042
     Dates: start: 20200527, end: 20200911
  2. CAPECITABINE [Suspect]
     Active Substance: CAPECITABINE
     Indication: Adenocarcinoma of colon
     Dosage: ON DAYS 1-14 EVERY 3 WEEKS
     Route: 048
     Dates: start: 202011
  3. FRUQUINTINIB [Suspect]
     Active Substance: FRUQUINTINIB
     Indication: Adenocarcinoma of colon
     Dosage: ON DAYS 1-14 EVERY 3 WEEKS
     Route: 048
     Dates: start: 202211
  4. OXALIPLATIN [Suspect]
     Active Substance: OXALIPLATIN
     Indication: Adenocarcinoma of colon
     Dosage: ON DAY 1
     Route: 042
     Dates: start: 20200527, end: 20200911
  5. LEUCOVORIN [Suspect]
     Active Substance: LEUCOVORIN
     Indication: Adenocarcinoma of colon
     Dosage: ON DAY 1
     Route: 065
     Dates: start: 20200527, end: 20200911
  6. FLUOROURACIL [Suspect]
     Active Substance: FLUOROURACIL
     Indication: Adenocarcinoma of colon
     Dosage: ON DAY 1
     Route: 040
     Dates: start: 20200527
  7. FLUOROURACIL [Suspect]
     Active Substance: FLUOROURACIL
     Dosage: 4.7 CONTINUOUS INTRAVENOUS INFUSION (CIV)
     Route: 042
     Dates: end: 20200911
  8. IRINOTECAN [Suspect]
     Active Substance: IRINOTECAN
     Indication: Adenocarcinoma of colon
     Dosage: ON DAY 1
     Route: 042
     Dates: start: 20200527, end: 20200911

REACTIONS (6)
  - Thrombocytopenia [Unknown]
  - Myelosuppression [Unknown]
  - Leukopenia [Unknown]
  - Neutropenia [Unknown]
  - Nerve injury [Unknown]
  - Hypoaesthesia [Unknown]
